FAERS Safety Report 8193008-4 (Version None)
Quarter: 2012Q1

REPORT INFORMATION
  Report Type: 
  Country: None (occurrence: None)
  Receive Date: 20120308
  Receipt Date: 20120229
  Transmission Date: 20120608
  Serious: Yes (Other)
  Sender: FDA-Public Use
  Company Number: CA-TEVA-326118USA

PATIENT
  Sex: Male

DRUGS (1)
  1. NYSTATIN [Suspect]
     Dosage: 100,000 UNITS/ML
     Route: 048

REACTIONS (3)
  - HYPERSENSITIVITY [None]
  - SWOLLEN TONGUE [None]
  - ERYTHEMA [None]
